FAERS Safety Report 24103266 (Version 3)
Quarter: 2024Q3

REPORT INFORMATION
  Report Type: Spontaneous
  Country: IT (occurrence: IT)
  Receive Date: 20240717
  Receipt Date: 20240813
  Transmission Date: 20241017
  Serious: Yes (Death, Other)
  Sender: AUROBINDO
  Company Number: IT-TEO-20241619

PATIENT
  Age: 33 Year
  Sex: Male

DRUGS (8)
  1. ALPRAZOLAM [Interacting]
     Active Substance: ALPRAZOLAM
     Indication: Product used for unknown indication
     Dosage: UNK
     Route: 065
  2. COCAINE [Interacting]
     Active Substance: COCAINE
     Indication: Product used for unknown indication
     Dosage: UNK
     Route: 065
  3. DEXTROMETHORPHAN [Interacting]
     Active Substance: DEXTROMETHORPHAN
     Indication: Product used for unknown indication
     Dosage: 1 UNK
     Route: 065
  4. DIAMORPHINE [Interacting]
     Active Substance: DIAMORPHINE
     Indication: Product used for unknown indication
     Dosage: UNK
     Route: 065
  5. FLURAZEPAM [Interacting]
     Active Substance: FLURAZEPAM HYDROCHLORIDE
     Indication: Product used for unknown indication
     Dosage: UNK
     Route: 065
  6. HEROIN [Interacting]
     Active Substance: DIAMORPHINE
     Indication: Product used for unknown indication
     Dosage: UNK
     Route: 065
  7. METHADONE [Interacting]
     Active Substance: METHADONE HYDROCHLORIDE
     Indication: Product used for unknown indication
     Dosage: UNK
     Route: 065
  8. NORDAZEPAM [Interacting]
     Active Substance: NORDAZEPAM
     Indication: Product used for unknown indication
     Dosage: UNK
     Route: 065

REACTIONS (11)
  - Death [Fatal]
  - Gastrointestinal mucosa hyperaemia [Fatal]
  - Postmortem blood drug level increased [Fatal]
  - Puncture site haematoma [Fatal]
  - Gastritis haemorrhagic [Fatal]
  - Cardiopulmonary failure [Fatal]
  - Depressed level of consciousness [Fatal]
  - Visceral congestion [Fatal]
  - Toxicity to various agents [Fatal]
  - Drug interaction [Fatal]
  - Drug abuse [Fatal]
